FAERS Safety Report 9596097 (Version 1)
Quarter: 2013Q4

REPORT INFORMATION
  Report Type: Spontaneous
  Country: US (occurrence: US)
  Receive Date: 20131004
  Receipt Date: 20131004
  Transmission Date: 20140711
  Serious: No
  Sender: FDA-Public Use
  Company Number: US-BAYER-2013-119610

PATIENT
  Age: 52 Year
  Sex: Female

DRUGS (2)
  1. GADAVIST [Suspect]
     Indication: NUCLEAR MAGNETIC RESONANCE IMAGING
     Dosage: 6.5 ML, ONCE
     Dates: start: 20130925, end: 20130925
  2. GADAVIST [Suspect]
     Indication: HYPOAESTHESIA

REACTIONS (1)
  - Urticaria [None]
